FAERS Safety Report 5900282-0 (Version None)
Quarter: 2008Q3

REPORT INFORMATION
  Report Type: 
  Country: None (occurrence: None)
  Receive Date: 20080926
  Receipt Date: 20080922
  Transmission Date: 20090109
  Serious: Yes (Hospitalization)
  Sender: FDA-Public Use
  Company Number: PHHY2008US22215

PATIENT
  Weight: 70 kg

DRUGS (4)
  1. ERL 080A ERL+TAB [Suspect]
     Indication: IMMUNOSUPPRESSION
     Dosage: 1440 MG PER DAY
     Route: 048
     Dates: start: 20080213
  2. TACROLIMUS [Concomitant]
     Indication: IMMUNOSUPPRESSION
     Dosage: 3 MG, BID
     Dates: start: 20080213
  3. PREDNISONE [Concomitant]
     Indication: IMMUNOSUPPRESSION
     Dosage: 5 MG, QD
     Dates: start: 20080218
  4. LIPITOR [Concomitant]
     Indication: HYPERLIPIDAEMIA
     Dosage: 40 MG, QD
     Dates: start: 20080605

REACTIONS (6)
  - COLITIS [None]
  - DIARRHOEA [None]
  - ORAL HERPES [None]
  - PANCYTOPENIA [None]
  - PROCTALGIA [None]
  - WHITE BLOOD CELL COUNT DECREASED [None]
